FAERS Safety Report 9397090 (Version 2)
Quarter: 2013Q3

REPORT INFORMATION
  Report Type: Spontaneous
  Country: JP (occurrence: JP)
  Receive Date: 20130712
  Receipt Date: 20130720
  Transmission Date: 20140515
  Serious: Yes (Death)
  Sender: FDA-Public Use
  Company Number: JP-ASTRAZENECA-2013SE51781

PATIENT
  Age: 4 Year
  Sex: Female

DRUGS (4)
  1. TENORMIN [Suspect]
     Indication: LONG QT SYNDROME
     Route: 048
  2. XYLOCAINE [Suspect]
     Indication: LONG QT SYNDROME
     Dosage: DOSE UNKNOWN
     Route: 042
  3. MEXILETINE HYDROCHLORIDE [Concomitant]
     Indication: LONG QT SYNDROME
     Dosage: DOSE UNKNOWN
     Route: 048
  4. LANDIOLOL HYDROCHLORIDE [Concomitant]
     Indication: LONG QT SYNDROME
     Dosage: DOSE UNKNOWN
     Route: 042

REACTIONS (2)
  - Long QT syndrome [Fatal]
  - Vomiting [Unknown]
